FAERS Safety Report 6753918-9 (Version None)
Quarter: 2010Q2

REPORT INFORMATION
  Report Type: 
  Country: None (occurrence: None)
  Receive Date: 20100603
  Receipt Date: 20100520
  Transmission Date: 20101027
  Serious: Yes (Other)
  Sender: FDA-Public Use
  Company Number: US-ELI_LILLY_AND_COMPANY-US201005006936

PATIENT
  Sex: Female
  Weight: 58.957 kg

DRUGS (3)
  1. STRATTERA [Suspect]
     Indication: TOURETTE'S DISORDER
     Dosage: 1 D/F, UNKNOWN
     Dates: start: 20050101
  2. STRATTERA [Suspect]
     Dosage: 80 MG, DAILY (1/D)
  3. STRATTERA [Suspect]
     Dosage: 25 MG, 2/D
     Dates: start: 20090501

REACTIONS (2)
  - EPISTAXIS [None]
  - OFF LABEL USE [None]
